FAERS Safety Report 6216957-2 (Version None)
Quarter: 2009Q2

REPORT INFORMATION
  Report Type: 
  Country: None (occurrence: None)
  Receive Date: 20090604
  Receipt Date: 20090520
  Transmission Date: 20091009
  Serious: Yes (Hospitalization, Other)
  Sender: FDA-Public Use
  Company Number: ADE# 09-235DPR

PATIENT
  Age: 93 Year
  Sex: Male

DRUGS (6)
  1. DIGOXIN [Suspect]
     Indication: ATRIAL FIBRILLATION
     Dosage: ONE TABLET DAILY
     Dates: start: 20080501
  2. METOPROLOL SUCCINATE [Concomitant]
  3. COUMADIN [Concomitant]
  4. CARDIZEM [Concomitant]
  5. POTASSIUM CHLORIDE [Concomitant]
  6. WATER PILL (LASIX) [Concomitant]

REACTIONS (12)
  - ANURIA [None]
  - ASTHENIA [None]
  - CONSTIPATION [None]
  - DIZZINESS [None]
  - HALLUCINATION [None]
  - HYPOACUSIS [None]
  - HYPOTENSION [None]
  - NAUSEA [None]
  - PULMONARY OEDEMA [None]
  - THERAPEUTIC AGENT TOXICITY [None]
  - URINARY TRACT INFECTION [None]
  - WEIGHT DECREASED [None]
